FAERS Safety Report 14593469 (Version 1)
Quarter: 2018Q1

REPORT INFORMATION
  Report Type: Spontaneous
  Country: US (occurrence: US)
  Receive Date: 20180302
  Receipt Date: 20180302
  Transmission Date: 20180509
  Serious: No
  Sender: FDA-Public Use
  Company Number: US-TEVA-2018-US-855717

PATIENT
  Sex: Female

DRUGS (4)
  1. FENTANYL. [Suspect]
     Active Substance: FENTANYL
     Dosage: DOSE STRENGTH:  25MCG 5
     Route: 065
  2. FENTANYL. [Suspect]
     Active Substance: FENTANYL
     Indication: PAIN
     Dosage: DOSE STRENGTH:  25MCG 5
     Route: 065
  3. FENTANYL. [Suspect]
     Active Substance: FENTANYL
     Route: 065
  4. FENTANYL. [Suspect]
     Active Substance: FENTANYL
     Route: 065

REACTIONS (2)
  - Drug resistance [Unknown]
  - Product odour abnormal [Unknown]
